FAERS Safety Report 4931648-3 (Version None)
Quarter: 2006Q1

REPORT INFORMATION
  Report Type: 
  Country: None (occurrence: None)
  Receive Date: 20060303
  Receipt Date: 20051118
  Transmission Date: 20060701
  Serious: Yes (Hospitalization)
  Sender: FDA-Public Use
  Company Number: US-BRISTOL-MYERS SQUIBB COMPANY-13187588

PATIENT
  Sex: Male
  Weight: 86 kg

DRUGS (5)
  1. ERBITUX [Suspect]
     Indication: COLON CANCER
     Dosage: LOAD DOSE 800 MG ON OCT 12; 500 MG 03-NOV, 500 MG 09-NOV-2005.
     Route: 042
     Dates: start: 20051116, end: 20051116
  2. ANEMET [Concomitant]
     Indication: PREMEDICATION
     Route: 042
     Dates: start: 20051116, end: 20051116
  3. DIPHENHYDRAMINE [Concomitant]
     Indication: PREMEDICATION
     Route: 042
     Dates: start: 20051116, end: 20051116
  4. TYLENOL (CAPLET) [Concomitant]
     Indication: PREMEDICATION
     Route: 048
     Dates: start: 20051116, end: 20051116
  5. DEMEROL [Concomitant]

REACTIONS (1)
  - INFUSION RELATED REACTION [None]
